FAERS Safety Report 15221864 (Version 1)
Quarter: 2018Q3

REPORT INFORMATION
  Report Type: Spontaneous
  Country: DE (occurrence: DE)
  Receive Date: 20180731
  Receipt Date: 20180731
  Transmission Date: 20181010
  Serious: Yes (Hospitalization, Other)
  Sender: FDA-Public Use
  Company Number: DE-DRREDDYS-GER/GER/18/0102445

PATIENT
  Age: 72 Year
  Sex: Female
  Weight: 68 kg

DRUGS (12)
  1. DOCETAXEL. [Suspect]
     Active Substance: DOCETAXEL
     Dosage: DAILY DOSE: 100 MG MILLGRAM(S) EVERY 3 WEEKS
     Dates: start: 20140513, end: 20140513
  2. HERCEPTIN [Suspect]
     Active Substance: TRASTUZUMAB
     Indication: HER-2 POSITIVE BREAST CANCER
     Dosage: MAINTENANCE DOSE
     Route: 042
     Dates: start: 20140604, end: 20140826
  3. PERTUZUMAB. [Suspect]
     Active Substance: PERTUZUMAB
     Dosage: DAILY DOSE: 420 MG MILLGRAM(S) EVERY 3 WEEKS
     Dates: end: 20160314
  4. PREDNISOLON [Concomitant]
     Active Substance: PREDNISOLONE
     Indication: POLYMYALGIA RHEUMATICA
     Dates: start: 20141008
  5. PANTOPRAZOLE [Concomitant]
     Active Substance: PANTOPRAZOLE
     Indication: POLYMYALGIA RHEUMATICA
     Dosage: DAILY DOSE: 40 MG MILLGRAM(S) EVERY DAYS
     Route: 048
  6. DOCETAXEL. [Suspect]
     Active Substance: DOCETAXEL
     Dosage: DAILY DOSE: 130 MG MILLGRAM(S) EVERY 3 WEEKS
     Dates: end: 20160314
  7. HERCEPTIN [Suspect]
     Active Substance: TRASTUZUMAB
     Dosage: LOADING DOSE
     Dates: start: 20140513, end: 20140513
  8. HERCEPTIN [Suspect]
     Active Substance: TRASTUZUMAB
     Dates: start: 20141007, end: 20160222
  9. PERTUZUMAB. [Suspect]
     Active Substance: PERTUZUMAB
     Dosage: LOADING DOSE
     Dates: start: 20140513, end: 20140513
  10. PREDNISOLON [Concomitant]
     Active Substance: PREDNISOLONE
     Dosage: DAILY DOSE: 2.5 MG MILLGRAM(S) EVERY DAYS
     Dates: start: 2009
  11. DOCETAXEL. [Suspect]
     Active Substance: DOCETAXEL
     Indication: HER-2 POSITIVE BREAST CANCER
     Dosage: DAILY DOSE: 130 MG MILLGRAM(S) EVERY 3 WEEKS
     Route: 042
     Dates: start: 20140604, end: 20140905
  12. PERTUZUMAB. [Suspect]
     Active Substance: PERTUZUMAB
     Indication: BREAST CANCER
     Dosage: MAINTENANCE DOSE
     Route: 042
     Dates: start: 20140604, end: 20140905

REACTIONS (4)
  - Interstitial lung disease [Recovering/Resolving]
  - Bronchitis chronic [Recovered/Resolved]
  - Pneumonia [Recovered/Resolved]
  - Pneumonitis [Recovered/Resolved]

NARRATIVE: CASE EVENT DATE: 20140702
